FAERS Safety Report 9348443 (Version 2)
Quarter: 2013Q3

REPORT INFORMATION
  Report Type: Spontaneous
  Country: FR (occurrence: FR)
  Receive Date: 20130614
  Receipt Date: 20130910
  Transmission Date: 20140515
  Serious: Yes (Other)
  Sender: FDA-Public Use
  Company Number: FR-ASTELLAS-2013EU005020

PATIENT
  Age: 79 Year
  Sex: Male
  Weight: 76 kg

DRUGS (3)
  1. VESICARE [Suspect]
     Indication: HYPERTONIC BLADDER
     Dosage: 1 DF, UID/QD
     Route: 048
     Dates: start: 20130426, end: 20130526
  2. LOXEN [Concomitant]
     Indication: HYPERTENSION
     Dosage: 20 MG, UID/QD
     Route: 048
     Dates: start: 20130404
  3. LOXEN [Concomitant]
     Indication: HYPERTENSION
     Dosage: 50 MG, UID/QD
     Route: 048
     Dates: start: 20130404

REACTIONS (2)
  - Blood urine present [Recovered/Resolved]
  - Renal colic [Recovered/Resolved]
